FAERS Safety Report 12899428 (Version 3)
Quarter: 2017Q4

REPORT INFORMATION
  Report Type: Spontaneous
  Country: US (occurrence: US)
  Receive Date: 20161101
  Receipt Date: 20171031
  Transmission Date: 20180320
  Serious: No
  Sender: FDA-Public Use
  Company Number: US-ABBVIE-16P-163-1744654-00

PATIENT
  Sex: Female

DRUGS (1)
  1. BIAXIN [Suspect]
     Active Substance: CLARITHROMYCIN
     Indication: INFECTION
     Route: 048

REACTIONS (4)
  - Asthenia [Recovered/Resolved]
  - Diarrhoea [Recovered/Resolved]
  - Drug hypersensitivity [Unknown]
  - Infection [Recovered/Resolved]
